FAERS Safety Report 11896002 (Version 6)
Quarter: 2016Q3

REPORT INFORMATION
  Report Type: Report from Study
  Country: AU (occurrence: AU)
  Receive Date: 20160107
  Receipt Date: 20160829
  Transmission Date: 20161109
  Serious: Yes (Life-Threatening, Hospitalization, Other)
  Sender: FDA-Public Use
  Company Number: AU-AMGEN-AUSCT2016000949

PATIENT
  Age: 12 Year
  Sex: Male
  Weight: 40.5 kg

DRUGS (22)
  1. DEXAMETHASONE. [Concomitant]
     Active Substance: DEXAMETHASONE
     Dosage: 4 TO 13 MG, UNK
     Dates: start: 20151020, end: 20151223
  2. METHOTREXATE. [Concomitant]
     Active Substance: METHOTREXATE
     Dosage: 12 TO 15 MG, UNK
     Dates: start: 20151013, end: 20151222
  3. NYSTATIN. [Concomitant]
     Active Substance: NYSTATIN
     Dosage: 1 ML, UNK
     Route: 048
     Dates: start: 20151102, end: 20151210
  4. LORAZEPAM. [Concomitant]
     Active Substance: LORAZEPAM
     Dosage: 1 MG, UNK
     Route: 048
     Dates: start: 20151020, end: 20151129
  5. MIDAZOLAM [Concomitant]
     Active Substance: MIDAZOLAM\MIDAZOLAM HYDROCHLORIDE
     Dosage: 2 TO 10 MG, UNK
     Route: 042
     Dates: start: 20151027, end: 20151227
  6. ALLOPURINOL. [Concomitant]
     Active Substance: ALLOPURINOL
     Dosage: 200 MG, UNK
     Route: 048
     Dates: start: 20151019, end: 20151105
  7. BACTRIM [Concomitant]
     Active Substance: SULFAMETHOXAZOLE\TRIMETHOPRIM
     Dosage: 200 MG AND 12.5 ML, UNK
     Route: 042
     Dates: start: 20151018, end: 20151209
  8. PARACETAMOL [Concomitant]
     Active Substance: ACETAMINOPHEN
     Dosage: 600 TO 690 MG, UNK
     Route: 048
     Dates: start: 20151021, end: 20151211
  9. CARFILZOMIB [Suspect]
     Active Substance: CARFILZOMIB
     Indication: ACUTE LYMPHOCYTIC LEUKAEMIA
     Dosage: 35 MG, PER CHEMO REGIM
     Route: 042
     Dates: start: 20151020, end: 20151223
  10. TAZOCIN [Concomitant]
     Active Substance: PIPERACILLIN SODIUM\TAZOBACTAM SODIUM
     Dosage: 4 G, UNK
     Dates: start: 20151027
  11. METOCLOPRAMIDE. [Concomitant]
     Active Substance: METOCLOPRAMIDE
     Dosage: 6 TO 6.5 MG, UNK
     Route: 042
     Dates: start: 20151021, end: 20151210
  12. INSULIN [Concomitant]
     Active Substance: INSULIN NOS
     Dosage: 3 UNK, UNK
     Route: 058
     Dates: start: 20151104, end: 20151105
  13. MEROPENEM. [Concomitant]
     Active Substance: MEROPENEM
     Dosage: 1.6 G, UNK
     Route: 050
     Dates: start: 20151119
  14. ONDANSETRON [Concomitant]
     Active Substance: ONDANSETRON
     Dosage: 4 TO 6 MG, UNK
     Route: 042
     Dates: start: 20151020, end: 20151211
  15. MAGNESIUM [Concomitant]
     Active Substance: MAGNESIUM
     Dosage: UNK
     Dates: start: 20151021, end: 20151227
  16. SODIUM CHLORIDE + GLUCOSE [Concomitant]
     Dosage: 165 ML, UNK
     Route: 042
     Dates: start: 20151020, end: 20151209
  17. SODIUM BICARBONATE. [Concomitant]
     Active Substance: SODIUM BICARBONATE
     Dosage: 5 TO 80 ML, UNK
     Route: 048
     Dates: start: 20151030, end: 20151210
  18. OMEPRAZOLE. [Concomitant]
     Active Substance: OMEPRAZOLE
     Dosage: 20 MG, UNK
     Route: 048
     Dates: start: 20151019, end: 20151211
  19. FRUSEMIDE [Concomitant]
     Active Substance: FUROSEMIDE
     Dosage: 20 MG, UNK
     Route: 042
     Dates: start: 20151020, end: 20151114
  20. AMBISOME [Concomitant]
     Active Substance: AMPHOTERICIN B
     Dosage: 40 MG, UNK
     Route: 042
     Dates: start: 20151019, end: 20151116
  21. AMIKACIN [Concomitant]
     Active Substance: AMIKACIN
     Dosage: UNK
     Route: 050
     Dates: start: 20151215
  22. FENTANYL. [Concomitant]
     Active Substance: FENTANYL
     Dosage: 150 TO 2000 MCG, UNK
     Route: 042
     Dates: start: 20151016, end: 20151207

REACTIONS (3)
  - Clonic convulsion [Recovered/Resolved]
  - Diarrhoea [Recovered/Resolved]
  - Febrile neutropenia [Recovered/Resolved]

NARRATIVE: CASE EVENT DATE: 20151105
